FAERS Safety Report 22614836 (Version 1)
Quarter: 2023Q2

REPORT INFORMATION
  Report Type: Spontaneous
  Country: PL (occurrence: PL)
  Receive Date: 20230619
  Receipt Date: 20230619
  Transmission Date: 20230721
  Serious: Yes (Other)
  Sender: FDA-Public Use
  Company Number: PL-009507513-2306POL007906

PATIENT
  Age: 60 Year
  Sex: Male

DRUGS (5)
  1. PEMBROLIZUMAB [Suspect]
     Active Substance: PEMBROLIZUMAB
     Indication: Pharyngeal cancer
     Dosage: 200 MILLIGRAM, Q3W
     Route: 042
     Dates: start: 20221215
  2. PEMBROLIZUMAB [Suspect]
     Active Substance: PEMBROLIZUMAB
     Indication: Squamous cell carcinoma of the oral cavity
  3. APO AMLO [Concomitant]
     Dosage: 5 MILLIGRAM, QD
     Route: 048
  4. NEBIVOLOL [Concomitant]
     Active Substance: NEBIVOLOL
     Dosage: 5 MILLIGRAM, QD
     Route: 048
  5. ALLOPURINOL [Concomitant]
     Active Substance: ALLOPURINOL
     Dosage: 100 MILLIGRAM, QD
     Route: 048

REACTIONS (18)
  - Thyroid fibrosis [Unknown]
  - Oesophageal dilatation [Unknown]
  - Hypothyroidism [Recovering/Resolving]
  - Adrenal insufficiency [Recovering/Resolving]
  - Hypogonadism [Recovering/Resolving]
  - Performance status decreased [Recovered/Resolved]
  - Hyponatraemia [Recovering/Resolving]
  - Decreased appetite [Recovering/Resolving]
  - Discharge [Recovering/Resolving]
  - Hiatus hernia [Recovering/Resolving]
  - Mediastinal mass [Unknown]
  - Stomach mass [Unknown]
  - Oesophageal wall hypertrophy [Unknown]
  - Gastrooesophageal reflux disease [Unknown]
  - Nausea [Recovering/Resolving]
  - Vomiting [Recovering/Resolving]
  - Respiration abnormal [Recovering/Resolving]
  - Therapy partial responder [Unknown]

NARRATIVE: CASE EVENT DATE: 20230101
